FAERS Safety Report 9726562 (Version 2)
Quarter: 2014Q1

REPORT INFORMATION
  Report Type: Spontaneous
  Country: US (occurrence: US)
  Receive Date: 20131203
  Receipt Date: 20140205
  Transmission Date: 20141002
  Serious: Yes (Other)
  Sender: FDA-Public Use
  Company Number: US-GLAXOSMITHKLINE-A1051740A

PATIENT
  Age: 55 Year
  Sex: Male

DRUGS (1)
  1. COREG CR [Suspect]
     Indication: CARDIOVASCULAR DISORDER
     Dosage: 10MG UNKNOWN
     Route: 065

REACTIONS (2)
  - Cerebrovascular accident [Unknown]
  - Disability [Not Recovered/Not Resolved]
